FAERS Safety Report 5763991-2 (Version None)
Quarter: 2008Q2

REPORT INFORMATION
  Report Type: 
  Country: None (occurrence: None)
  Receive Date: 20080606
  Receipt Date: 20080606
  Transmission Date: 20081010
  Serious: No
  Sender: FDA-Public Use
  Company Number: None

PATIENT
  Sex: Female
  Weight: 85.7298 kg

DRUGS (2)
  1. ZIAC [Suspect]
     Indication: HYPERTENSION
     Dosage: 10 MG ONCE DAILY
     Dates: start: 19980101
  2. ZOLOFT [Suspect]
     Indication: DEPRESSION
     Dosage: 25 MG ONCE DAILY
     Dates: start: 20050101

REACTIONS (2)
  - NAUSEA [None]
  - PHARMACEUTICAL PRODUCT COMPLAINT [None]
